FAERS Safety Report 9483557 (Version 1)
Quarter: 2013Q3

REPORT INFORMATION
  Report Type: Spontaneous
  Country: US (occurrence: US)
  Receive Date: 20130828
  Receipt Date: 20130828
  Transmission Date: 20140515
  Serious: Yes (Other)
  Sender: FDA-Public Use
  Company Number: US-ABBOTT-13P-163-1137736-00

PATIENT
  Age: 57 Year
  Sex: Female
  Weight: 63.56 kg

DRUGS (11)
  1. SYNTHROID [Suspect]
     Indication: HYPOTHYROIDISM
     Route: 048
     Dates: start: 20130513, end: 20130520
  2. SYNTHROID [Suspect]
     Indication: BASEDOW^S DISEASE
     Dates: start: 20130521, end: 20130528
  3. SYNTHROID [Suspect]
     Dates: start: 20130529, end: 20130812
  4. SYNTHROID [Suspect]
     Dates: start: 20130813
  5. UNSPECIFIED MEDICATION [Concomitant]
     Indication: PRODUCT USED FOR UNKNOWN INDICATION
  6. NEURONTIN [Concomitant]
     Indication: PRODUCT USED FOR UNKNOWN INDICATION
  7. ZANAFLEX [Concomitant]
     Indication: PRODUCT USED FOR UNKNOWN INDICATION
  8. VALIUM [Concomitant]
     Indication: PRODUCT USED FOR UNKNOWN INDICATION
  9. PHENERGAN [Concomitant]
     Indication: PRODUCT USED FOR UNKNOWN INDICATION
  10. DEMEROL [Concomitant]
     Indication: PRODUCT USED FOR UNKNOWN INDICATION
  11. SULFITES [Concomitant]
     Indication: PRODUCT USED FOR UNKNOWN INDICATION

REACTIONS (17)
  - Feeling abnormal [Unknown]
  - Bone pain [Unknown]
  - Abdominal pain [Unknown]
  - Drug ineffective [Unknown]
  - Adverse drug reaction [Unknown]
  - Asthenia [Unknown]
  - Fatigue [Unknown]
  - Pain [Unknown]
  - Asthenia [Unknown]
  - General physical health deterioration [Unknown]
  - Hypothyroidism [Unknown]
  - Diarrhoea [Unknown]
  - Tremor [Unknown]
  - Feeling abnormal [Unknown]
  - Palpitations [Unknown]
  - Clumsiness [Unknown]
  - Dysgeusia [Unknown]
